FAERS Safety Report 9856700 (Version 2)
Quarter: 2014Q2

REPORT INFORMATION
  Report Type: Spontaneous
  Country: US (occurrence: US)
  Receive Date: 20140130
  Receipt Date: 20140415
  Transmission Date: 20141212
  Serious: Yes (Life-Threatening, Hospitalization, Disabling, Other)
  Sender: FDA-Public Use
  Company Number: US-GLAXOSMITHKLINE-A1058775A

PATIENT
  Age: 70 Year
  Sex: Female

DRUGS (1)
  1. ARIXTRA [Suspect]
     Indication: ANTICOAGULANT THERAPY
     Dosage: 7.5MG UNKNOWN
     Route: 065
     Dates: start: 20131231

REACTIONS (3)
  - Coronary artery stenosis [Recovering/Resolving]
  - Coronary artery bypass [Recovering/Resolving]
  - Dyspnoea [Recovering/Resolving]
